FAERS Safety Report 5052261-6 (Version None)
Quarter: 2006Q2

REPORT INFORMATION
  Report Type: 
  Country: None (occurrence: None)
  Receive Date: 20060614
  Receipt Date: 20060221
  Transmission Date: 20061013
  Serious: Yes (Other)
  Sender: FDA-Public Use
  Company Number: 437668

PATIENT
  Age: 62 Year
  Sex: Female

DRUGS (3)
  1. BONIVA [Suspect]
     Indication: DRUG USE FOR UNKNOWN INDICATION
     Dosage: 1 PER MONTH
     Dates: start: 20050915
  2. CITRICAL (CALCIUM CARBONATE) [Concomitant]
  3. IMITREX [Concomitant]

REACTIONS (1)
  - EPISTAXIS [None]
